FAERS Safety Report 15157039 (Version 2)
Quarter: 2018Q3

REPORT INFORMATION
  Report Type: Spontaneous
  Country: PL (occurrence: PL)
  Receive Date: 20180718
  Receipt Date: 20180723
  Transmission Date: 20181010
  Serious: Yes (Life-Threatening)
  Sender: FDA-Public Use
  Company Number: PL-ROCHE-2154139

PATIENT
  Age: 71 Year
  Sex: Male
  Weight: 98 kg

DRUGS (4)
  1. CORHYDRON (POLAND) [Concomitant]
     Active Substance: HYDROCORTISONE SODIUM SUCCINATE
     Indication: B-CELL LYMPHOMA
     Route: 042
     Dates: start: 20180709, end: 20180709
  2. PARACETAMOL [Concomitant]
     Active Substance: ACETAMINOPHEN
     Indication: B-CELL LYMPHOMA
     Route: 048
     Dates: start: 20180709, end: 20180709
  3. CETIRIZINE [Concomitant]
     Active Substance: CETIRIZINE HYDROCHLORIDE
     Indication: B-CELL LYMPHOMA
     Route: 048
     Dates: start: 20180709, end: 20180709
  4. MABTHERA [Suspect]
     Active Substance: RITUXIMAB
     Indication: DIFFUSE LARGE B-CELL LYMPHOMA
     Route: 042
     Dates: start: 20180709

REACTIONS (2)
  - Blood pressure decreased [Unknown]
  - Hyperhidrosis [Unknown]

NARRATIVE: CASE EVENT DATE: 20180709
